FAERS Safety Report 25814414 (Version 2)
Quarter: 2025Q4

REPORT INFORMATION
  Report Type: Spontaneous
  Country: GB (occurrence: GB)
  Receive Date: 20250917
  Receipt Date: 20251230
  Transmission Date: 20260117
  Serious: Yes (Other)
  Sender: NOVARTIS
  Company Number: GB-002147023-NVSC2025GB115217

PATIENT
  Sex: Female

DRUGS (10)
  1. GLIVEC [Suspect]
     Active Substance: IMATINIB MESYLATE
     Indication: Philadelphia chromosome positive
     Dosage: 400 MG
     Route: 065
     Dates: start: 20230803, end: 20230831
  2. GLIVEC [Suspect]
     Active Substance: IMATINIB MESYLATE
     Indication: B-cell type acute leukaemia
  3. DASATINIB [Suspect]
     Active Substance: DASATINIB
     Indication: Philadelphia chromosome positive
     Dosage: 20-100 MG
     Route: 065
     Dates: start: 20250722, end: 20251220
  4. DASATINIB [Suspect]
     Active Substance: DASATINIB
     Indication: B-cell type acute leukaemia
  5. BLINATUMOMAB [Suspect]
     Active Substance: BLINATUMOMAB
     Indication: Philadelphia chromosome positive
     Dosage: 300 UG, QD
     Route: 065
     Dates: start: 20230922, end: 20250123
  6. BLINATUMOMAB [Suspect]
     Active Substance: BLINATUMOMAB
     Indication: B-cell type acute leukaemia
  7. INOTUZUMAB OZOGAMICIN [Suspect]
     Active Substance: INOTUZUMAB OZOGAMICIN
     Indication: Philadelphia chromosome positive
     Dosage: UNK (0.8MG/0.5MG/M2)
     Route: 065
     Dates: start: 20250131, end: 20250513
  8. INOTUZUMAB OZOGAMICIN [Suspect]
     Active Substance: INOTUZUMAB OZOGAMICIN
     Indication: B-cell type acute leukaemia
  9. PONATINIB [Suspect]
     Active Substance: PONATINIB
     Indication: Philadelphia chromosome positive
     Dosage: 15-45 MG
     Route: 065
     Dates: start: 20250513, end: 20250624
  10. PONATINIB [Suspect]
     Active Substance: PONATINIB
     Indication: B-cell type acute leukaemia

REACTIONS (3)
  - Leukaemia recurrent [Unknown]
  - Gastrointestinal disorder [Unknown]
  - Drug ineffective [Unknown]
